FAERS Safety Report 12693873 (Version 3)
Quarter: 2016Q4

REPORT INFORMATION
  Report Type: Spontaneous
  Country: US (occurrence: US)
  Receive Date: 20160829
  Receipt Date: 20161104
  Transmission Date: 20170207
  Serious: No
  Sender: FDA-Public Use
  Company Number: US-PFIZER INC-2016400421

PATIENT
  Age: 47 Year
  Sex: Male
  Weight: 108 kg

DRUGS (5)
  1. MEDROL [Suspect]
     Active Substance: METHYLPREDNISOLONE
     Indication: MUSCULAR WEAKNESS
  2. MEDROL [Suspect]
     Active Substance: METHYLPREDNISOLONE
     Indication: PAIN IN EXTREMITY
     Dosage: UNK (MEDROL DOSE PACK AS PER INSTRUCTIONS)
     Route: 048
     Dates: start: 20160811, end: 20160816
  3. DIOVAN [Concomitant]
     Active Substance: VALSARTAN
     Indication: HYPERTENSION
     Dosage: UNK (4 MONTHS)
     Dates: start: 20160426, end: 20160913
  4. NEURONTIN [Concomitant]
     Active Substance: GABAPENTIN
     Indication: PAIN
     Dosage: UNK
     Dates: start: 20160407
  5. TEMAZEPAM. [Concomitant]
     Active Substance: TEMAZEPAM
     Indication: INSOMNIA
     Dosage: UNK (6 MONTHS)
     Dates: start: 20160307, end: 20160928

REACTIONS (1)
  - Drug ineffective [Recovered/Resolved]
